FAERS Safety Report 20609146 (Version 1)
Quarter: 2022Q1

REPORT INFORMATION
  Report Type: Spontaneous
  Country: ET (occurrence: ET)
  Receive Date: 20220317
  Receipt Date: 20220317
  Transmission Date: 20220423
  Serious: Yes (Other)
  Sender: FDA-Public Use
  Company Number: ET-Fresenius Kabi-FK202203095

PATIENT
  Age: 28 Year
  Sex: Female

DRUGS (1)
  1. OXYTOCIN [Suspect]
     Active Substance: OXYTOCIN
     Indication: Labour induction
     Dosage: UNKNOWN
     Route: 065

REACTIONS (2)
  - Cervix disorder [Recovered/Resolved]
  - Exposure during pregnancy [Recovered/Resolved]
